FAERS Safety Report 25383862 (Version 1)
Quarter: 2025Q2

REPORT INFORMATION
  Report Type: Spontaneous
  Country: HU (occurrence: HU)
  Receive Date: 20250602
  Receipt Date: 20250602
  Transmission Date: 20250717
  Serious: Yes (Other)
  Sender: ROCHE
  Company Number: HU-ROCHE-10000295674

PATIENT

DRUGS (1)
  1. OCREVUS [Suspect]
     Active Substance: OCRELIZUMAB
     Indication: Product used for unknown indication
     Route: 050

REACTIONS (8)
  - Colitis [Unknown]
  - Gastrointestinal haemorrhage [Unknown]
  - Delirium [Unknown]
  - Amnesia [Unknown]
  - Hallucination [Unknown]
  - Platelet count decreased [Unknown]
  - Petechiae [Unknown]
  - Cognitive disorder [Unknown]
